FAERS Safety Report 7067365-6 (Version None)
Quarter: 2010Q4

REPORT INFORMATION
  Report Type: 
  Country: None (occurrence: None)
  Receive Date: 20101028
  Receipt Date: 20101016
  Transmission Date: 20110411
  Serious: No
  Sender: FDA-Public Use
  Company Number: TR-JNJFOC-20101005891

PATIENT
  Age: 17 Year
  Sex: Male

DRUGS (1)
  1. DURAGESIC-100 [Suspect]
     Indication: CANCER PAIN
     Route: 062

REACTIONS (1)
  - SEDATION [None]
